FAERS Safety Report 15466551 (Version 1)
Quarter: 2018Q4

REPORT INFORMATION
  Report Type: Report from Study
  Country: None (occurrence: US)
  Receive Date: 20181004
  Receipt Date: 20181004
  Transmission Date: 20190204
  Serious: Yes (Other)
  Sender: FDA-Public Use
  Company Number: US-ABBVIE-18S-163-2509053-00

PATIENT
  Sex: Female

DRUGS (1)
  1. CREON [Suspect]
     Active Substance: PANCRELIPASE AMYLASE\PANCRELIPASE LIPASE\PANCRELIPASE PROTEASE
     Indication: PRODUCT USED FOR UNKNOWN INDICATION
     Route: 048

REACTIONS (7)
  - Hip arthroplasty [Unknown]
  - Medical device implantation [Unknown]
  - Pancreaticoduodenectomy [Unknown]
  - Burns third degree [Unknown]
  - Renal cancer [Unknown]
  - Cholecystectomy [Unknown]
  - Volvulus [Unknown]

NARRATIVE: CASE EVENT DATE: 198202
